FAERS Safety Report 6692694-5 (Version None)
Quarter: 2010Q2

REPORT INFORMATION
  Report Type: 
  Country: None (occurrence: None)
  Receive Date: 20100422
  Receipt Date: 20100412
  Transmission Date: 20101027
  Serious: Yes (Death, Other)
  Sender: FDA-Public Use
  Company Number: US-PFIZER INC-2010032026

PATIENT
  Sex: Male

DRUGS (5)
  1. SOMAVERT [Suspect]
     Indication: ACROMEGALY
     Dosage: 15 MG, UNK
     Dates: start: 20050101
  2. SOMAVERT [Suspect]
     Dosage: 20 MG, UNK
  3. SOMAVERT [Suspect]
     Dosage: 30 MG, 1X/DAY
  4. SYNTHROID [Concomitant]
     Dosage: UNK
  5. HYDROCORTISONE [Concomitant]
     Dosage: UNK

REACTIONS (3)
  - BLOOD GROWTH HORMONE INCREASED [None]
  - HYPERTENSION [None]
  - PULMONARY EMBOLISM [None]
